FAERS Safety Report 7496828-4 (Version None)
Quarter: 2011Q2

REPORT INFORMATION
  Report Type: 
  Country: None (occurrence: None)
  Receive Date: 20110516
  Receipt Date: 20110507
  Transmission Date: 20111010
  Serious: Yes (Death)
  Sender: FDA-Public Use
  Company Number: JP-ACCORD-008518

PATIENT
  Age: 59 Year
  Sex: Male

DRUGS (5)
  1. FLUOROURACIL [Suspect]
     Indication: GASTRIC CANCER
  2. ANTINEOPLASTIC AGENTS(ANTINEOPLASTIC AGENTS) [Suspect]
     Indication: GASTRIC CANCER
     Dosage: ORAL
     Route: 048
  3. OXALIPLATIN [Suspect]
     Indication: GASTRIC CANCER
  4. LEUCOVORIN(LEUCOVORIN) [Suspect]
     Indication: GASTRIC CANCER
     Dosage: ORAL
     Route: 048
  5. IRINOTECAN HCL [Suspect]
     Indication: GASTRIC CANCER

REACTIONS (1)
  - MALIGNANT ASCITES [None]
